FAERS Safety Report 12968471 (Version 2)
Quarter: 2017Q3

REPORT INFORMATION
  Report Type: Report from Study
  Country: JP (occurrence: JP)
  Receive Date: 20161123
  Receipt Date: 20170918
  Transmission Date: 20171127
  Serious: Yes (Other)
  Sender: FDA-Public Use
  Company Number: JP-VIFOR (INTERNATIONAL) INC.-VIT-2016-07913

PATIENT
  Age: 40 Year
  Sex: Male
  Weight: 72 kg

DRUGS (8)
  1. ROCALTROL [Concomitant]
     Active Substance: CALCITRIOL
     Route: 048
  2. ZETIA [Concomitant]
     Active Substance: EZETIMIBE
     Route: 048
  3. EPOETIN ALFA BS [Suspect]
     Active Substance: ERYTHROPOIETIN
     Indication: PRODUCT USED FOR UNKNOWN INDICATION
     Dates: end: 20160711
  4. EPOETIN ALFA BS [Suspect]
     Active Substance: ERYTHROPOIETIN
     Dates: start: 20160715, end: 20160725
  5. VELPHORO [Suspect]
     Active Substance: FERRIC OXYHYDROXIDE
     Indication: HYPERPHOSPHATAEMIA
     Route: 048
     Dates: start: 20160518, end: 20160822
  6. CALCIUM CARBONATE. [Concomitant]
     Active Substance: CALCIUM CARBONATE
     Indication: HYPERPHOSPHATAEMIA
     Route: 048
  7. LANDEL 40 [Concomitant]
     Route: 048
  8. AMARYL [Concomitant]
     Active Substance: GLIMEPIRIDE
     Route: 048

REACTIONS (3)
  - Red blood cell count increased [Recovering/Resolving]
  - Haematocrit increased [Recovering/Resolving]
  - Haemoglobin increased [Recovering/Resolving]

NARRATIVE: CASE EVENT DATE: 20160725
